FAERS Safety Report 9960337 (Version 1)
Quarter: 2014Q1

REPORT INFORMATION
  Report Type: Spontaneous
  Country: US (occurrence: US)
  Receive Date: 20140305
  Receipt Date: 20140305
  Transmission Date: 20141002
  Serious: No
  Sender: FDA-Public Use
  Company Number: US-009507513-1403USA001762

PATIENT
  Age: 83 Year
  Sex: Male

DRUGS (4)
  1. VYTORIN [Suspect]
     Indication: BLOOD CHOLESTEROL INCREASED
     Dosage: UNK
     Route: 048
  2. VYTORIN [Suspect]
     Dosage: EVERY OTHER DAY
     Route: 048
     Dates: start: 201312
  3. GLUMETZA [Concomitant]
     Dosage: UNK
  4. JANUVIA [Concomitant]
     Dosage: UNK

REACTIONS (1)
  - Confusional state [Unknown]
